FAERS Safety Report 8553083-1 (Version None)
Quarter: 2012Q3

REPORT INFORMATION
  Report Type: 
  Country: None (occurrence: None)
  Receive Date: 20120731
  Receipt Date: 20120720
  Transmission Date: 20120928
  Serious: Yes (Hospitalization)
  Sender: FDA-Public Use
  Company Number: FR-SANOFI-AVENTIS-2012SA051918

PATIENT
  Age: 70 Year
  Sex: Female

DRUGS (7)
  1. ASPIRIN [Interacting]
     Dosage: LONG-TERM THERAPY.
     Route: 048
  2. ROSUVASTATIN [Concomitant]
     Dosage: LONG-TERM THERAPY.
     Route: 048
  3. LASIX [Suspect]
     Route: 048
     Dates: start: 20120224, end: 20120327
  4. ALDACTONE [Interacting]
     Route: 048
     Dates: start: 20120308, end: 20120311
  5. CORDARONE [Concomitant]
     Dosage: LONG-TERM THERAPY.
     Route: 048
  6. ALDACTONE [Interacting]
     Route: 048
     Dates: start: 20120312, end: 20120319
  7. POTASSIUM CHLORIDE [Concomitant]
     Route: 048
     Dates: start: 20120316, end: 20120316

REACTIONS (4)
  - HYPONATRAEMIA [None]
  - DRUG INTERACTION [None]
  - RENAL FAILURE ACUTE [None]
  - HYPERKALAEMIA [None]
